FAERS Safety Report 7266313-3 (Version None)
Quarter: 2011Q1

REPORT INFORMATION
  Report Type: 
  Country: None (occurrence: None)
  Receive Date: 20110131
  Receipt Date: 20101206
  Transmission Date: 20110831
  Serious: Yes (Hospitalization)
  Sender: FDA-Public Use
  Company Number: DE-AMGEN-DEUCT2010007866

PATIENT
  Age: 71 Year
  Sex: Female
  Weight: 84 kg

DRUGS (8)
  1. PREDNISOLONE [Concomitant]
     Indication: RHEUMATOID ARTHRITIS
     Dosage: 30 MG, 1X/DAY
     Route: 048
     Dates: start: 20100801
  2. PANTOZOL [Concomitant]
     Indication: PROPHYLAXIS
     Dosage: 40 MG, 1X/DAY
     Route: 048
     Dates: start: 20100701
  3. ETANERCEPT [Suspect]
     Indication: RHEUMATOID ARTHRITIS
     Dosage: 50 MG, QWK
     Dates: start: 20100812
  4. ARCOXIA [Concomitant]
     Indication: RHEUMATOID ARTHRITIS
     Dosage: 90 MG, 1X/DAY
     Route: 048
     Dates: start: 20100701
  5. SIMVASTATIN [Concomitant]
     Indication: HYPERLIPIDAEMIA
     Dosage: 20 MG, 1X/DAY
     Route: 048
     Dates: start: 20090901
  6. ETANERCEPT [Suspect]
     Dosage: 50 MG, WEEKLY
     Route: 058
     Dates: start: 20100812, end: 20101102
  7. FUROBETA [Concomitant]
     Indication: RENAL FAILURE
     Dosage: 40 MG, 1X/DAY
     Route: 048
     Dates: start: 20100701
  8. DIGITOXIN [Concomitant]
     Indication: ATRIAL FIBRILLATION
     Dosage: 0.07 MG, 1X/DAY
     Route: 048

REACTIONS (2)
  - DRUG INEFFECTIVE [None]
  - RHEUMATOID ARTHRITIS [None]
